FAERS Safety Report 7826962-8 (Version None)
Quarter: 2011Q4

REPORT INFORMATION
  Report Type: 
  Country: None (occurrence: None)
  Receive Date: 20111020
  Receipt Date: 20111010
  Transmission Date: 20120403
  Serious: Yes (Other)
  Sender: FDA-Public Use
  Company Number: US-JNJFOC-20111004542

PATIENT
  Sex: Female

DRUGS (1)
  1. REMICADE [Suspect]
     Indication: CROHN'S DISEASE
     Dosage: HAS RECEIVED ONE DOSE OF INFLIXIMAB,RECOMBINANT
     Route: 042

REACTIONS (1)
  - CEREBRAL HAEMORRHAGE [None]
